FAERS Safety Report 23241022 (Version 1)
Quarter: 2023Q4

REPORT INFORMATION
  Report Type: Spontaneous
  Country: US (occurrence: None)
  Receive Date: 20231128
  Receipt Date: 20231128
  Transmission Date: 20240109
  Serious: Yes (Death, Life-Threatening, Hospitalization)
  Sender: FDA-Public Use
  Company Number: None

PATIENT
  Age: 82 Year
  Sex: Female
  Weight: 75.6 kg

DRUGS (3)
  1. TECVAYLI [Suspect]
     Active Substance: TECLISTAMAB-CQYV
     Indication: Bone cancer
     Dates: start: 20230421, end: 20230928
  2. blood pressure meds [Concomitant]
  3. cancer treatments [Concomitant]

REACTIONS (12)
  - Fatigue [None]
  - Decreased appetite [None]
  - Diarrhoea [None]
  - Feeding disorder [None]
  - Hypersomnia [None]
  - Gait disturbance [None]
  - Dysphagia [None]
  - Unresponsive to stimuli [None]
  - Seizure [None]
  - Hospice care [None]
  - Toxicity to various agents [None]
  - Blood pressure abnormal [None]

NARRATIVE: CASE EVENT DATE: 20230928
